FAERS Safety Report 4406814-6 (Version None)
Quarter: 2004Q3

REPORT INFORMATION
  Report Type: 
  Country: None (occurrence: None)
  Receive Date: 20040715
  Receipt Date: 20040702
  Transmission Date: 20050211
  Serious: Yes (Hospitalization)
  Sender: FDA-Public Use
  Company Number: JP-JNJFOC-20040602348

PATIENT
  Age: 64 Year
  Sex: Female

DRUGS (3)
  1. REMICADE [Suspect]
     Indication: RHEUMATOID ARTHRITIS
     Dosage: 3 MG/KG, 1 IN 1 DAY
     Dates: start: 20040427
  2. REMICADE [Suspect]
     Indication: RHEUMATOID ARTHRITIS
     Dosage: 3 MG/KG, 1 IN 1 DAY
     Dates: start: 20040511
  3. RHEUMATREX [Suspect]
     Indication: RHEUMATOID ARTHRITIS
     Dosage: 8 MG, 1 IN 1 WEEK

REACTIONS (5)
  - COUGH [None]
  - DRUG INTERACTION [None]
  - PNEUMONIA FUNGAL [None]
  - PYREXIA [None]
  - X-RAY ABNORMAL [None]
